FAERS Safety Report 10066423 (Version 1)
Quarter: 2014Q2

REPORT INFORMATION
  Report Type: Spontaneous
  Country: US (occurrence: None)
  Receive Date: 20140401
  Receipt Date: 20140401
  Transmission Date: 20141212
  Serious: Yes (Other)
  Sender: FDA-Public Use
  Company Number: PHEH2013US008900

PATIENT
  Age: 39 Year
  Sex: Female

DRUGS (5)
  1. EXELON PATCH (RIVASTIGMINE) TRANS-THERAPEUTIC-SYSTEM [Suspect]
     Route: 062
  2. LAMOTRIGINE (LAMOTRIGINE) [Concomitant]
  3. SYNTHROID (LEVOTHYROXINE SODIUM) [Concomitant]
  4. OXYBUTYNIN (OXYBUTYNIN) [Concomitant]
  5. MULTIVITAMIN/VITAMINS NOS (VITAMINS NOS) [Concomitant]

REACTIONS (7)
  - Convulsion [None]
  - Amnesia [None]
  - Staring [None]
  - Nervous system disorder [None]
  - Fear [None]
  - Logorrhoea [None]
  - Confusional state [None]
